FAERS Safety Report 7676695-6 (Version None)
Quarter: 2011Q3

REPORT INFORMATION
  Report Type: 
  Country: None (occurrence: None)
  Receive Date: 20110811
  Receipt Date: 20110808
  Transmission Date: 20111222
  Serious: Yes (Hospitalization, Other)
  Sender: FDA-Public Use
  Company Number: AR-AMGEN-ARGSP2011039205

PATIENT
  Age: 61 Year
  Sex: Female
  Weight: 70 kg

DRUGS (2)
  1. DICLOFENAC SODIUM [Concomitant]
     Dosage: UNK
     Route: 048
  2. ENBREL [Suspect]
     Indication: RHEUMATOID ARTHRITIS
     Dosage: 25 MG, ONE DOSE EVERY FIVE DAYS
     Route: 058
     Dates: start: 20050422

REACTIONS (3)
  - MOBILITY DECREASED [None]
  - PAIN [None]
  - CEREBROVASCULAR ACCIDENT [None]
